FAERS Safety Report 7984314-4 (Version None)
Quarter: 2011Q4

REPORT INFORMATION
  Report Type: 
  Country: None (occurrence: None)
  Receive Date: 20111216
  Receipt Date: 20111209
  Transmission Date: 20120403
  Serious: Yes (Hospitalization, Other)
  Sender: FDA-Public Use
  Company Number: JP-JNJFOC-20111205357

PATIENT
  Age: 64 Year
  Sex: Male

DRUGS (4)
  1. ZITHROMAX [Concomitant]
     Indication: PRODUCT USED FOR UNKNOWN INDICATION
     Route: 065
  2. LOXONIN [Concomitant]
     Indication: ANALGESIC THERAPY
     Route: 048
     Dates: start: 20111205, end: 20111205
  3. TRAMADOL HYDROCHLORIDE AND ACETAMINOPHEN [Suspect]
     Indication: PROCEDURAL PAIN
     Dosage: ONCE A DAY
     Route: 048
     Dates: start: 20111205, end: 20111205
  4. LOXONIN [Concomitant]
     Route: 048
     Dates: start: 20111201, end: 20111204

REACTIONS (4)
  - MALAISE [None]
  - FEELING ABNORMAL [None]
  - LOSS OF CONSCIOUSNESS [None]
  - HYPERHIDROSIS [None]
